FAERS Safety Report 13281375 (Version 1)
Quarter: 2017Q1

REPORT INFORMATION
  Report Type: Spontaneous
  Country: US (occurrence: US)
  Receive Date: 20170301
  Receipt Date: 20170301
  Transmission Date: 20170428
  Serious: No
  Sender: FDA-Public Use
  Company Number: US-AMAG PHARMACEUTICALS, INC.-AMAG201600833

PATIENT

DRUGS (7)
  1. MAKENA [Suspect]
     Active Substance: HYDROXYPROGESTERONE CAPROATE
     Indication: PREMATURE DELIVERY
     Dosage: 250 MG, WEEKLY
     Route: 030
     Dates: start: 20160229, end: 20160511
  2. METROGEL [Concomitant]
     Active Substance: METRONIDAZOLE
     Dosage: 0.75 %, UNK
     Route: 067
     Dates: start: 20160405, end: 20160410
  3. NITROFURANTOIN. [Concomitant]
     Active Substance: NITROFURANTOIN
     Dosage: 100 MG, UNK
     Route: 048
     Dates: start: 20160111, end: 20160118
  4. PRENATAL VITAMINS [Concomitant]
     Active Substance: VITAMINS
     Dosage: UNK
     Dates: start: 20151217
  5. TERAZOL [Concomitant]
     Active Substance: TERCONAZOLE
     Dosage: 0.4 %, UNK
     Route: 067
     Dates: start: 20160401, end: 20160408
  6. PROGESTERONE. [Concomitant]
     Active Substance: PROGESTERONE
     Dosage: 100 MG, UNK
     Route: 067
     Dates: start: 20151207, end: 20160512
  7. PROGESTERONE. [Concomitant]
     Active Substance: PROGESTERONE
     Dosage: 200 MG, QD
     Route: 048
     Dates: start: 20160512

REACTIONS (5)
  - Injection site induration [Recovered/Resolved]
  - Injection site mass [Recovered/Resolved]
  - Injection site pruritus [Recovered/Resolved]
  - Injection site hypersensitivity [Recovered/Resolved]
  - Injection site erythema [Recovered/Resolved]

NARRATIVE: CASE EVENT DATE: 20160511
